FAERS Safety Report 7779266-6 (Version None)
Quarter: 2011Q3

REPORT INFORMATION
  Report Type: 
  Country: None (occurrence: None)
  Receive Date: 20110926
  Receipt Date: 20110921
  Transmission Date: 20111222
  Serious: Yes (Other)
  Sender: FDA-Public Use
  Company Number: BE-MERCK-1109BEL00007

PATIENT

DRUGS (4)
  1. EMEND [Suspect]
     Indication: PROPHYLAXIS OF NAUSEA AND VOMITING
     Route: 048
  2. FOLINIC ACID [Concomitant]
     Route: 041
  3. IRINOTECAN HCL [Suspect]
     Route: 041
  4. FLUOROURACIL [Concomitant]
     Route: 041

REACTIONS (2)
  - DRUG INTERACTION [None]
  - DIARRHOEA [None]
